FAERS Safety Report 6384659-8 (Version None)
Quarter: 2009Q4

REPORT INFORMATION
  Report Type: 
  Country: None (occurrence: None)
  Receive Date: 20091001
  Receipt Date: 20090930
  Transmission Date: 20100525
  Serious: Yes (Death)
  Sender: FDA-Public Use
  Company Number: PHHO2009IT11760

PATIENT
  Sex: Female

DRUGS (2)
  1. STARLIX [Suspect]
     Indication: GLUCOSE TOLERANCE IMPAIRED
     Dosage: LEVEL 1
     Route: 048
     Dates: start: 20030415
  2. VALSARTAN [Suspect]
     Indication: CARDIOVASCULAR DISORDER
     Dosage: LEVEL 1
     Route: 048
     Dates: start: 20030415

REACTIONS (1)
  - SUDDEN DEATH [None]
